FAERS Safety Report 4411972-3 (Version None)
Quarter: 2004Q3

REPORT INFORMATION
  Report Type: 
  Country: None (occurrence: None)
  Receive Date: 20040729
  Receipt Date: 20040729
  Transmission Date: 20050211
  Serious: Yes (Death)
  Sender: FDA-Public Use
  Company Number: None

PATIENT
  Age: 71 Year
  Sex: Male

DRUGS (10)
  1. VP-16 100 MG/M2 [Suspect]
     Indication: SMALL CELL LUNG CANCER EXTENSIVE STAGE
     Dosage: VP-16 100MG/M2 IV
     Route: 042
     Dates: start: 20040630, end: 20040701
  2. CISPLATIN [Suspect]
     Dosage: CISPLATIN 80MG/M2 IV
     Route: 042
     Dates: start: 20040130
  3. LOPRESSOR [Concomitant]
  4. ASPIRIN [Concomitant]
  5. PREVACID [Concomitant]
  6. EXELON [Concomitant]
  7. LIPITOR [Concomitant]
  8. COUMADIN [Concomitant]
  9. OXYCONTIN [Concomitant]
  10. ALTACE [Concomitant]

REACTIONS (1)
  - BACK PAIN [None]
